FAERS Safety Report 4603102-X (Version None)
Quarter: 2005Q1

REPORT INFORMATION
  Report Type: 
  Country: None (occurrence: None)
  Receive Date: 20050307
  Receipt Date: 20050218
  Transmission Date: 20050727
  Serious: Yes (Hospitalization, Other)
  Sender: FDA-Public Use
  Company Number: 2004010156

PATIENT
  Sex: Male

DRUGS (5)
  1. VIAGRA [Suspect]
     Indication: ERECTILE DYSFUNCTION
     Dosage: 50 MG AS NECESSARY, ORAL
     Route: 048
  2. ATENOLOL [Suspect]
     Indication: HYPERTENSION
     Dosage: 100 MG (100 MG, 1 IN 1 D)
  3. BETA BLOCKING AGENTS (BETA BLOCKING AGENTS) [Concomitant]
  4. ANTIHYPERTENSIVES (ANTITHYPERTENSIVES) [Concomitant]
  5. PROPRANOLOL [Concomitant]

REACTIONS (3)
  - HYPOPITUITARISM [None]
  - IIIRD NERVE PARALYSIS [None]
  - PITUITARY TUMOUR BENIGN [None]
